FAERS Safety Report 11345412 (Version 2)
Quarter: 2015Q3

REPORT INFORMATION
  Report Type: Report from Study
  Country: BR (occurrence: BR)
  Receive Date: 20150806
  Receipt Date: 20150819
  Transmission Date: 20151125
  Serious: Yes (Other)
  Sender: FDA-Public Use
  Company Number: PHHY2015BR094911

PATIENT
  Sex: Female
  Weight: 46 kg

DRUGS (3)
  1. HYDROXYUREA. [Concomitant]
     Active Substance: HYDROXYUREA
     Indication: HAEMOGLOBIN ABNORMAL
     Dosage: 2 DF (OF 500 MG), QD
     Route: 048
  2. EXJADE [Suspect]
     Active Substance: DEFERASIROX
     Indication: SICKLE CELL ANAEMIA
     Dosage: 4 DF (OF 250 MG), UNK
     Route: 048
  3. FOLIC ACID. [Concomitant]
     Active Substance: FOLIC ACID
     Indication: SICKLE CELL ANAEMIA
     Dosage: 1 DF (OF 5 MG), QW3
     Route: 048

REACTIONS (10)
  - Asthenia [Unknown]
  - Malaise [Unknown]
  - Pain [Not Recovered/Not Resolved]
  - Immune system disorder [Unknown]
  - Infection [Unknown]
  - Arthralgia [Not Recovered/Not Resolved]
  - Headache [Not Recovered/Not Resolved]
  - Infected skin ulcer [Unknown]
  - Eating disorder [Unknown]
  - Sleep disorder [Unknown]
